FAERS Safety Report 19080429 (Version 1)
Quarter: 2021Q2

REPORT INFORMATION
  Report Type: Spontaneous
  Country: AU (occurrence: AU)
  Receive Date: 20210401
  Receipt Date: 20210401
  Transmission Date: 20210717
  Serious: Yes (Other)
  Sender: FDA-Public Use
  Company Number: AU-BRISTOL-MYERS SQUIBB COMPANY-BMS-2021-031156

PATIENT
  Age: 76 Year
  Sex: Male

DRUGS (1)
  1. NIVOLUMAB [Suspect]
     Active Substance: NIVOLUMAB
     Indication: MALIGNANT MELANOMA
     Dosage: UNK
     Route: 065
     Dates: start: 202001

REACTIONS (8)
  - Cellulitis [Unknown]
  - Insomnia [Unknown]
  - Fatigue [Unknown]
  - Intentional product use issue [Unknown]
  - Diarrhoea [Unknown]
  - Rash [Unknown]
  - Malaise [Unknown]
  - Conjunctivitis [Unknown]
